FAERS Safety Report 21725779 (Version 1)
Quarter: 2022Q4

REPORT INFORMATION
  Report Type: Spontaneous
  Country: NG (occurrence: NG)
  Receive Date: 20221214
  Receipt Date: 20221214
  Transmission Date: 20230113
  Serious: Yes (Life-Threatening, Hospitalization, Other)
  Sender: FDA-Public Use
  Company Number: NG-SUN PHARMACEUTICAL INDUSTRIES LTD-2022R1-368327

PATIENT
  Age: 25 Year
  Sex: Male
  Weight: 89 kg

DRUGS (5)
  1. PENTAZOCINE [Suspect]
     Active Substance: PENTAZOCINE
     Indication: Cardiac arrest
     Dosage: 30MG
     Route: 065
  2. PROPOFOL [Suspect]
     Active Substance: PROPOFOL
     Indication: Cardiac arrest
     Dosage: 200 MILLIGRAM
     Route: 065
  3. ATROPINE [Suspect]
     Active Substance: ATROPINE
     Indication: Product used for unknown indication
     Dosage: 0.6MG
     Route: 065
  4. ISOFLURANE [Suspect]
     Active Substance: ISOFLURANE
     Indication: Product used for unknown indication
     Route: 065
  5. SUCCINYLCHOLINE [Suspect]
     Active Substance: SUCCINYLCHOLINE
     Indication: Product used for unknown indication
     Dosage: 100 MILLIGRAM
     Route: 065

REACTIONS (2)
  - Cardiac arrest [Recovering/Resolving]
  - Sinus bradycardia [Recovering/Resolving]
